FAERS Safety Report 22034782 (Version 2)
Quarter: 2025Q1

REPORT INFORMATION
  Report Type: Spontaneous
  Country: US (occurrence: US)
  Receive Date: 20230224
  Receipt Date: 20250321
  Transmission Date: 20250409
  Serious: No
  Sender: Haleon PLC
  Company Number: US-GLAXOSMITHKLINE-USCH2023008079

PATIENT
  Age: 44 Year
  Sex: Female

DRUGS (2)
  1. FLONASE ALLERGY RELIEF [Suspect]
     Active Substance: FLUTICASONE PROPIONATE
     Indication: Hypersensitivity
     Dosage: ONCE PER DAY
     Dates: start: 20250209, end: 20250217
  2. FLONASE ALLERGY RELIEF [Suspect]
     Active Substance: FLUTICASONE PROPIONATE
     Indication: Nasal congestion
     Dates: start: 20230211, end: 20230219

REACTIONS (1)
  - Drug effect less than expected [Unknown]
